FAERS Safety Report 6814585-9 (Version None)
Quarter: 2010Q2

REPORT INFORMATION
  Report Type: 
  Country: None (occurrence: None)
  Receive Date: 20100629
  Receipt Date: 20100616
  Transmission Date: 20101027
  Serious: Yes (Other)
  Sender: FDA-Public Use
  Company Number: 2010AP001247

PATIENT
  Age: 59 Year
  Sex: Female

DRUGS (6)
  1. APO- SALVENT INHALER (SALSUTAMOL SULFATE) [Suspect]
     Indication: ASTHMA
     Dosage: 2 SPR; OID;  INH
     Route: 055
     Dates: start: 20100601, end: 20100601
  2. FLUTICASONE PROPIONATE [Concomitant]
  3. CLONIDINE [Concomitant]
  4. LANSOPRAZOLE [Concomitant]
  5. RANITIDINE [Concomitant]
  6. SALBUTAMOL (SALBUTAMOL) [Concomitant]

REACTIONS (5)
  - ASTHMA [None]
  - CONDITION AGGRAVATED [None]
  - DIARRHOEA [None]
  - SYNCOPE [None]
  - VOMITING [None]
